FAERS Safety Report 22603655 (Version 1)
Quarter: 2023Q2

REPORT INFORMATION
  Report Type: Report from Study
  Country: US (occurrence: US)
  Receive Date: 20230615
  Receipt Date: 20230615
  Transmission Date: 20230721
  Serious: Yes (Other)
  Sender: FDA-Public Use
  Company Number: US-ABBVIE-5290964

PATIENT
  Sex: Female

DRUGS (1)
  1. HUMIRA [Suspect]
     Active Substance: ADALIMUMAB
     Indication: Product used for unknown indication
     Dosage: FORM STRENGTH: 40 MILLIGRAM
     Route: 058
     Dates: start: 20171117, end: 2023

REACTIONS (3)
  - Carpal tunnel syndrome [Unknown]
  - SARS-CoV-2 test positive [Unknown]
  - Ulnar tunnel syndrome [Unknown]

NARRATIVE: CASE EVENT DATE: 20230101
